FAERS Safety Report 4442720-9 (Version None)
Quarter: 2004Q3

REPORT INFORMATION
  Report Type: 
  Country: None (occurrence: None)
  Receive Date: 20040903
  Receipt Date: 20040617
  Transmission Date: 20050211
  Serious: Yes (Other)
  Sender: FDA-Public Use
  Company Number: 2004UW12653

PATIENT
  Age: 63 Year
  Sex: Female
  Weight: 90.7194 kg

DRUGS (3)
  1. CRESTOR [Suspect]
     Indication: BLOOD CHOLESTEROL INCREASED
     Dosage: 10 MG DAILY PO
     Route: 048
     Dates: start: 20040505, end: 20040607
  2. AVALIDE [Concomitant]
  3. GLUCOPHAGE [Concomitant]

REACTIONS (3)
  - DIFFICULTY IN WALKING [None]
  - INSOMNIA [None]
  - MYALGIA [None]
